FAERS Safety Report 4925679-7 (Version None)
Quarter: 2006Q1

REPORT INFORMATION
  Report Type: 
  Country: None (occurrence: None)
  Receive Date: 20060228
  Receipt Date: 20050121
  Transmission Date: 20060701
  Serious: No
  Sender: FDA-Public Use
  Company Number: US-GLAXOSMITHKLINE-A0541743A

PATIENT
  Age: 16 Year
  Sex: Female

DRUGS (7)
  1. LAMICTAL [Suspect]
     Indication: BIPOLAR DISORDER
     Route: 048
     Dates: start: 20041101
  2. VISTARIL [Concomitant]
  3. BUSPAR [Concomitant]
  4. ZYPREXA [Concomitant]
  5. ABILIFY [Concomitant]
  6. LITHIUM [Concomitant]
  7. ANTIBIOTICS [Concomitant]

REACTIONS (4)
  - PYREXIA [None]
  - RASH GENERALISED [None]
  - RESPIRATORY TRACT INFECTION [None]
  - SKIN INFECTION [None]
